FAERS Safety Report 24711059 (Version 1)
Quarter: 2024Q4

REPORT INFORMATION
  Report Type: Spontaneous
  Country: US (occurrence: None)
  Receive Date: 20241206
  Receipt Date: 20241206
  Transmission Date: 20250115
  Serious: Yes (Hospitalization)
  Sender: Public
  Company Number: None

PATIENT
  Sex: Female

DRUGS (4)
  1. GLATIRAMER [Suspect]
     Active Substance: GLATIRAMER
     Indication: Multiple sclerosis
     Dosage: FREQ: INJECT 40 ML UNDER THE SKIN (SUBCUTANEOUS INJECTION) 3 TIMES A WEEK?
     Route: 058
     Dates: start: 20221210
  2. COPAXONE [Concomitant]
     Active Substance: GLATIRAMER ACETATE
  3. DALFAMPRIDINE [Concomitant]
     Active Substance: DALFAMPRIDINE
  4. FUROSEMIDE [Concomitant]
     Active Substance: FUROSEMIDE

REACTIONS (2)
  - Rehabilitation therapy [None]
  - Therapy interrupted [None]
